FAERS Safety Report 24310325 (Version 2)
Quarter: 2025Q1

REPORT INFORMATION
  Report Type: Report from Study
  Country: CA (occurrence: CA)
  Receive Date: 20240912
  Receipt Date: 20250129
  Transmission Date: 20250408
  Serious: Yes (Hospitalization)
  Sender: RECORDATI
  Company Number: CA-RECORDATI RARE DISEASES-2024006951

PATIENT

DRUGS (2)
  1. CARBAGLU [Suspect]
     Active Substance: CARGLUMIC ACID
     Indication: Carbamoyl phosphate synthetase deficiency
     Dosage: 130 MILLIGRAM/KILOGRAM, QD (ONCE DAILY)
     Dates: start: 20240616
  2. CARBAGLU [Suspect]
     Active Substance: CARGLUMIC ACID
     Dosage: 350 MG, TID

REACTIONS (2)
  - Hospitalisation [Unknown]
  - Elective procedure [Unknown]

NARRATIVE: CASE EVENT DATE: 20240101
